FAERS Safety Report 7799719-4 (Version None)
Quarter: 2011Q4

REPORT INFORMATION
  Report Type: 
  Country: None (occurrence: None)
  Receive Date: 20111006
  Receipt Date: 20110930
  Transmission Date: 20120403
  Serious: Yes (Other)
  Sender: FDA-Public Use
  Company Number: PHEH2009US02711

PATIENT
  Sex: Female

DRUGS (5)
  1. DILANTIN [Concomitant]
     Dosage: 130 MG, BID
  2. PREVACID [Concomitant]
     Dosage: 15 MG, QD
  3. AMITRIPTYLINE HCL [Concomitant]
     Dosage: 150 MG, QD
  4. AREDIA [Suspect]
     Dosage: UNK
     Dates: start: 19950101, end: 20010101
  5. ZOMETA [Suspect]
     Dosage: 4 MG, QMO

REACTIONS (20)
  - ARTHRALGIA [None]
  - CHOLESTEATOMA [None]
  - TRYPTASE INCREASED [None]
  - GAMMA-GLUTAMYLTRANSFERASE INCREASED [None]
  - OSTEONECROSIS OF JAW [None]
  - DECREASED APPETITE [None]
  - INFECTION [None]
  - DEFORMITY [None]
  - HAEMORRHOIDS [None]
  - PAIN [None]
  - OSTEOPOROSIS [None]
  - COUGH [None]
  - GINGIVAL ABSCESS [None]
  - CONVULSION [None]
  - ANXIETY DISORDER [None]
  - ENDOMETRIOSIS [None]
  - DYSPNOEA [None]
  - GASTROOESOPHAGEAL REFLUX DISEASE [None]
  - BONE PAIN [None]
  - NAUSEA [None]
